FAERS Safety Report 10902298 (Version 5)
Quarter: 2015Q3

REPORT INFORMATION
  Report Type: Spontaneous
  Country: IT (occurrence: IT)
  Receive Date: 20150310
  Receipt Date: 20150729
  Transmission Date: 20151125
  Serious: Yes (Death, Hospitalization)
  Sender: FDA-Public Use
  Company Number: IT-ELI_LILLY_AND_COMPANY-IT201503001330

PATIENT
  Age: 62 Year
  Sex: Male
  Weight: 72 kg

DRUGS (5)
  1. ALIMTA [Suspect]
     Active Substance: PEMETREXED DISODIUM
     Dosage: 350 MG/M2, UNKNOWN
     Route: 042
  2. DOBETIN                            /00056201/ [Concomitant]
     Active Substance: CYANOCOBALAMIN
     Indication: PREMEDICATION
     Dosage: EVERY 9 WEEKS
     Route: 030
  3. ALIMTA [Suspect]
     Active Substance: PEMETREXED DISODIUM
     Indication: MESOTHELIOMA
     Dosage: 500 MG/M2, CYCLICAL
     Route: 042
     Dates: start: 20150202
  4. FOLINGRAV [Concomitant]
     Dosage: 1 DF, QD
  5. CISPLATIN. [Concomitant]
     Active Substance: CISPLATIN
     Indication: CHEMOTHERAPY
     Dosage: 75 MG/M2, UNKNOWN
     Route: 042
     Dates: start: 20150202, end: 20150223

REACTIONS (1)
  - Coma hepatic [Fatal]

NARRATIVE: CASE EVENT DATE: 20150227
